FAERS Safety Report 9437521 (Version 1)
Quarter: 2013Q3

REPORT INFORMATION
  Report Type: Spontaneous
  Country: US (occurrence: US)
  Receive Date: 20130802
  Receipt Date: 20130802
  Transmission Date: 20140515
  Serious: No
  Sender: FDA-Public Use
  Company Number: US-PFIZER INC-2013224790

PATIENT
  Sex: Female

DRUGS (1)
  1. LIPITOR [Suspect]
     Indication: HYPERLIPIDAEMIA
     Dosage: UNK

REACTIONS (4)
  - Drug hypersensitivity [Unknown]
  - Dizziness [Unknown]
  - Hyperhidrosis [Unknown]
  - Vomiting [Unknown]
